FAERS Safety Report 15320976 (Version 1)
Quarter: 2018Q3

REPORT INFORMATION
  Report Type: Spontaneous
  Country: US (occurrence: US)
  Receive Date: 20180821
  Receipt Date: 20180821
  Transmission Date: 20181010
  Serious: Yes (Disabling)
  Sender: FDA-Public Use
  Company Number: None

PATIENT
  Age: 62 Year
  Sex: Female
  Weight: 48.08 kg

DRUGS (7)
  1. BOTOX [Concomitant]
     Active Substance: ONABOTULINUMTOXINA
  2. MUTI?VITAMIN (FRUITS + VEGGIES) [Concomitant]
  3. COMPOUNDED THYROID MEDICINE (T3/T4) [Concomitant]
  4. MULTI=MINERAL SUPPLEMENT [Concomitant]
  5. DEXTROAMPHETAMINE 10MG TABLET [Suspect]
     Active Substance: DEXTROAMPHETAMINE
     Indication: ATTENTION DEFICIT/HYPERACTIVITY DISORDER
     Dosage: ?          QUANTITY:1 DF DOSAGE FORM;?
     Route: 048
     Dates: start: 20180608
  6. BIO IDENTICAL HORMONE THERAPY [Concomitant]
  7. BLACK CUMIN SEED OIL [Concomitant]

REACTIONS (3)
  - Product substitution issue [None]
  - Drug ineffective [None]
  - Migraine [None]

NARRATIVE: CASE EVENT DATE: 20180608
